FAERS Safety Report 6130493-3 (Version None)
Quarter: 2009Q1

REPORT INFORMATION
  Report Type: 
  Country: None (occurrence: None)
  Receive Date: 20090323
  Receipt Date: 20090306
  Transmission Date: 20090719
  Serious: Yes (Other)
  Sender: FDA-Public Use
  Company Number: 1022556-2009-00017

PATIENT
  Sex: Male

DRUGS (1)
  1. CAPZASIN NO-MESS LIQUID 1OZ [Suspect]
     Indication: ANALGESIC THERAPY
     Dosage: 1 X, TOPICAL
     Route: 061
     Dates: start: 20090305

REACTIONS (4)
  - APPLICATION SITE ERYTHEMA [None]
  - APPLICATION SITE IRRITATION [None]
  - APPLICATION SITE VESICLES [None]
  - BURNS SECOND DEGREE [None]
